FAERS Safety Report 18023217 (Version 4)
Quarter: 2021Q2

REPORT INFORMATION
  Report Type: Spontaneous
  Country: US (occurrence: US)
  Receive Date: 20200715
  Receipt Date: 20210409
  Transmission Date: 20210717
  Serious: Yes (Other)
  Sender: FDA-Public Use
  Company Number: US-GILEAD-2020-0477181

PATIENT
  Age: 50 Year
  Sex: Female

DRUGS (3)
  1. TRUVADA [Suspect]
     Active Substance: EMTRICITABINE\TENOFOVIR DISOPROXIL FUMARATE
     Dosage: UNK
     Route: 048
     Dates: start: 20121029, end: 20150810
  2. TRUVADA [Suspect]
     Active Substance: EMTRICITABINE\TENOFOVIR DISOPROXIL FUMARATE
     Indication: HIV INFECTION
     Dosage: UNK
     Route: 048
     Dates: start: 201307, end: 201509
  3. VIREAD [Suspect]
     Active Substance: TENOFOVIR DISOPROXIL FUMARATE
     Indication: HIV INFECTION
     Dosage: UNK
     Route: 065
     Dates: start: 20121029, end: 20150810

REACTIONS (9)
  - Chronic kidney disease [Not Recovered/Not Resolved]
  - Emotional distress [Unknown]
  - Anxiety [Unknown]
  - Thoracic vertebral fracture [Recovered/Resolved]
  - Pain [Unknown]
  - Compression fracture [Recovered/Resolved]
  - Bone density decreased [Not Recovered/Not Resolved]
  - Fracture [Recovered/Resolved]
  - Anhedonia [Unknown]

NARRATIVE: CASE EVENT DATE: 20170104
